FAERS Safety Report 21493353 (Version 1)
Quarter: 2022Q4

REPORT INFORMATION
  Report Type: Spontaneous
  Country: US (occurrence: None)
  Receive Date: 20221021
  Receipt Date: 20221021
  Transmission Date: 20230112
  Serious: Yes (Other)
  Sender: FDA-Public Use
  Company Number: None

PATIENT
  Age: 50 Year
  Sex: Female
  Weight: 73.35 kg

DRUGS (1)
  1. TYRVAYA [Suspect]
     Active Substance: VARENICLINE TARTRATE
     Indication: Dry eye
     Dosage: OTHER QUANTITY : 1 SPRAY(S);?FREQUENCY : TWICE A DAY;?OTHER ROUTE : NASAL SPRAY;?
     Route: 050
     Dates: start: 20220913, end: 20220927

REACTIONS (3)
  - Panic attack [None]
  - Chest discomfort [None]
  - Insomnia [None]

NARRATIVE: CASE EVENT DATE: 20220914
